FAERS Safety Report 25827346 (Version 4)
Quarter: 2025Q4

REPORT INFORMATION
  Report Type: Spontaneous
  Country: ZA (occurrence: ZA)
  Receive Date: 20250920
  Receipt Date: 20251209
  Transmission Date: 20260118
  Serious: Yes (Other)
  Sender: NOVARTIS
  Company Number: ZA-002147023-NVSC2025ZA142864

PATIENT
  Age: 30 Year
  Sex: Female

DRUGS (3)
  1. OFATUMUMAB [Suspect]
     Active Substance: OFATUMUMAB
     Indication: Relapsing-remitting multiple sclerosis
     Dosage: 20 MG, QW
     Route: 058
     Dates: start: 20250909
  2. OFATUMUMAB [Suspect]
     Active Substance: OFATUMUMAB
     Dosage: 20 MG, QMO
     Route: 058
     Dates: start: 20251007
  3. TRAMADOL HYDROCHLORIDE [Concomitant]
     Active Substance: TRAMADOL HYDROCHLORIDE
     Indication: Pain
     Dosage: UNK
     Route: 065

REACTIONS (18)
  - Mobility decreased [Recovering/Resolving]
  - Back pain [Recovered/Resolved]
  - Neuralgia [Recovered/Resolved]
  - Influenza like illness [Recovered/Resolved]
  - Chills [Recovered/Resolved]
  - Pain [Recovered/Resolved]
  - Crying [Recovered/Resolved]
  - Diarrhoea [Recovering/Resolving]
  - Dizziness [Unknown]
  - Arthralgia [Unknown]
  - Fatigue [Unknown]
  - Pyrexia [Unknown]
  - Headache [Not Recovered/Not Resolved]
  - Myalgia [Unknown]
  - Injection site pain [Not Recovered/Not Resolved]
  - Chills [Not Recovered/Not Resolved]
  - Ear disorder [Not Recovered/Not Resolved]
  - Hot flush [Not Recovered/Not Resolved]

NARRATIVE: CASE EVENT DATE: 20250909
